FAERS Safety Report 8694251 (Version 4)
Quarter: 2012Q4

REPORT INFORMATION
  Report Type: 
  Country: US (occurrence: US)
  Receive Date: 20120731
  Receipt Date: 20120927
  Transmission Date: 20130627
  Serious: Yes (Death, Hospitalization, Other)
  Sender: FDA-Public Use
  Company Number: US-PFIZER INC-2012181810

PATIENT
  Age: 44 Year
  Sex: Female
  Weight: 73.47 kg

DRUGS (1)
  1. LYRICA [Suspect]
     Indication: FIBROMYALGIA
     Dosage: 75 mg, 2x/day
     Route: 048

REACTIONS (2)
  - Small intestinal obstruction [Fatal]
  - Thrombosis mesenteric vessel [Fatal]
